FAERS Safety Report 9020777 (Version 1)
Quarter: 2013Q1

REPORT INFORMATION
  Report Type: Spontaneous
  Country: US (occurrence: US)
  Receive Date: 20130119
  Receipt Date: 20130119
  Transmission Date: 20140127
  Serious: No
  Sender: FDA-Public Use
  Company Number: US-ALLERGAN-1206153US

PATIENT
  Age: 37 Year
  Sex: Female

DRUGS (4)
  1. BOTOX COSMETIC [Suspect]
     Indication: SKIN WRINKLING
     Dosage: 43 UNITS, SINGLE
     Route: 030
     Dates: start: 20111210, end: 20111210
  2. BOTOX COSMETIC [Suspect]
     Indication: SKIN WRINKLING
     Dosage: 10 UNITS, SINGLE
     Route: 030
     Dates: start: 20111220, end: 20111220
  3. BOTOX COSMETIC [Suspect]
     Indication: SKIN WRINKLING
     Dosage: 12 UNITS, SINGLE
     Route: 030
     Dates: start: 20120130, end: 20120130
  4. BOTOX COSMETIC [Suspect]
     Dosage: 45 UNITS, SINGLE
     Route: 030
     Dates: start: 20120326, end: 20120326

REACTIONS (1)
  - Therapeutic response decreased [Unknown]
